FAERS Safety Report 18184916 (Version 2)
Quarter: 2020Q4

REPORT INFORMATION
  Report Type: Spontaneous
  Country: US (occurrence: US)
  Receive Date: 20200824
  Receipt Date: 20201006
  Transmission Date: 20210113
  Serious: No
  Sender: FDA-Public Use
  Company Number: US-ASTRAZENECA-2020SF04856

PATIENT
  Age: 24655 Day
  Sex: Male
  Weight: 90.7 kg

DRUGS (3)
  1. METFORMIN [Concomitant]
     Active Substance: METFORMIN HYDROCHLORIDE
     Indication: TYPE 2 DIABETES MELLITUS
     Dosage: 2000.0MG UNKNOWN
     Dates: start: 20131017
  2. VICTOZA [Concomitant]
     Active Substance: LIRAGLUTIDE
  3. BYDUREON BCISE [Suspect]
     Active Substance: EXENATIDE
     Indication: TYPE 2 DIABETES MELLITUS
     Route: 065
     Dates: start: 20190821, end: 20200918

REACTIONS (6)
  - Drug dose omission by device [Unknown]
  - Device malfunction [Recovered/Resolved]
  - Injection site erythema [Unknown]
  - Device leakage [Unknown]
  - Injection site haemorrhage [Unknown]
  - Wrong technique in device usage process [Unknown]

NARRATIVE: CASE EVENT DATE: 20200818
